FAERS Safety Report 6194140-7 (Version None)
Quarter: 2009Q2

REPORT INFORMATION
  Report Type: 
  Country: None (occurrence: None)
  Receive Date: 20090518
  Receipt Date: 20090511
  Transmission Date: 20091009
  Serious: Yes (Death)
  Sender: FDA-Public Use
  Company Number: IN-GENENTECH-283035

PATIENT
  Age: 35 Year
  Sex: Male

DRUGS (1)
  1. ACTIVASE [Suspect]
     Indication: PULMONARY EMBOLISM
     Dosage: 100 MG, UNK
     Route: 042
     Dates: start: 20090509, end: 20090509

REACTIONS (1)
  - DEATH [None]
